FAERS Safety Report 6573648-6 (Version None)
Quarter: 2010Q1

REPORT INFORMATION
  Report Type: 
  Country: None (occurrence: None)
  Receive Date: 20100208
  Receipt Date: 20100201
  Transmission Date: 20100710
  Serious: Yes (Death, Other)
  Sender: FDA-Public Use
  Company Number: DE-ROCHE-683787

PATIENT

DRUGS (5)
  1. MYCOPHENOLATE MOFETIL [Suspect]
     Route: 048
  2. DACLIZUMAB [Suspect]
     Dosage: 24 HOUR PRE-TRANSPLANT
     Route: 042
  3. DACLIZUMAB [Suspect]
     Route: 042
  4. CYCLOSPORINE [Suspect]
     Dosage: 75-125 NG/ML
     Route: 065
  5. CYCLOSPORINE [Suspect]
     Dosage: AT 6 MONTH: 50-75 NG/ML
     Route: 065

REACTIONS (10)
  - BLOOD DISORDER [None]
  - CARDIOVASCULAR DISORDER [None]
  - DEATH [None]
  - GASTROINTESTINAL DISORDER [None]
  - INFECTION [None]
  - METABOLIC DISORDER [None]
  - NERVOUS SYSTEM DISORDER [None]
  - RENAL DISORDER [None]
  - TRANSPLANT REJECTION [None]
  - UROGENITAL DISORDER [None]
